FAERS Safety Report 24057817 (Version 1)
Quarter: 2024Q3

REPORT INFORMATION
  Report Type: Spontaneous
  Country: US (occurrence: US)
  Receive Date: 20240707
  Receipt Date: 20240707
  Transmission Date: 20241017
  Serious: No
  Sender: ROCHE
  Company Number: US-ROCHE-10000016530

PATIENT
  Age: 75 Year
  Sex: Male
  Weight: 81.64 kg

DRUGS (1)
  1. TECENTRIQ [Suspect]
     Active Substance: ATEZOLIZUMAB
     Indication: Small cell lung cancer
     Route: 042
     Dates: start: 20231030, end: 20240528

REACTIONS (5)
  - Lymphadenopathy [Unknown]
  - Back pain [Not Recovered/Not Resolved]
  - Myalgia [Unknown]
  - Sneezing [Unknown]
  - Infection [Unknown]

NARRATIVE: CASE EVENT DATE: 20240501
